FAERS Safety Report 5512023-X (Version None)
Quarter: 2007Q4

REPORT INFORMATION
  Report Type: 
  Country: None (occurrence: None)
  Receive Date: 20071109
  Receipt Date: 20071105
  Transmission Date: 20080405
  Serious: Yes (Hospitalization)
  Sender: FDA-Public Use
  Company Number: GB-BOEHRINGER INGELHEIM PHARMACEUTICALS, INC.-2007-DE-06515GD

PATIENT
  Age: 60 Year
  Sex: Male

DRUGS (6)
  1. TIOTROPIUM-BROMIDE [Suspect]
     Indication: CHRONIC OBSTRUCTIVE PULMONARY DISEASE
     Route: 055
     Dates: start: 20031117
  2. PREDNISOLONE [Concomitant]
  3. SALMETEROL XINAFOATE [Concomitant]
  4. METFORMIN HYDROCHLORIDE [Concomitant]
     Indication: DIABETES MELLITUS
  5. HUMAN INSULIN [Concomitant]
     Indication: DIABETES MELLITUS
  6. SIMVASTATIN [Concomitant]
     Indication: HYPERCHOLESTEROLAEMIA

REACTIONS (2)
  - CHRONIC OBSTRUCTIVE PULMONARY DISEASE [None]
  - DYSPNOEA [None]
